FAERS Safety Report 7588136-8 (Version None)
Quarter: 2011Q2

REPORT INFORMATION
  Report Type: 
  Country: None (occurrence: None)
  Receive Date: 20110627
  Receipt Date: 20110616
  Transmission Date: 20111010
  Serious: Yes (Hospitalization, Other)
  Sender: FDA-Public Use
  Company Number: 2009AC000172

PATIENT
  Age: 45 Year
  Sex: Female
  Weight: 90.2658 kg

DRUGS (51)
  1. TRIAMCINOLONE [Concomitant]
  2. ALTACE [Concomitant]
  3. LOTENSIN [Concomitant]
  4. LOVENOX [Concomitant]
  5. DIGOXIN [Suspect]
     Indication: ATRIAL FIBRILLATION
     Dosage: 0.25 MG; QD; PO
     Route: 048
     Dates: start: 20020719, end: 20050719
  6. DIGOXIN [Suspect]
     Dosage: 0.5 MG; IV
     Route: 042
     Dates: start: 20060410, end: 20060410
  7. COREG [Concomitant]
  8. LASIX [Concomitant]
  9. AMIODARONE HCL [Concomitant]
  10. BEXTRA [Concomitant]
  11. DIGOXIN [Suspect]
     Dosage: 0.125 MG; QD; PO
     Route: 048
     Dates: start: 20070101
  12. NOVOLOG [Concomitant]
  13. MYCOSTATIN [Concomitant]
  14. HUMALOG [Concomitant]
  15. PROTONIX [Concomitant]
  16. DIGOXIN [Suspect]
     Dosage: 0.250 MG; QD; PO
     Route: 048
     Dates: start: 20060501, end: 20070101
  17. CARVEDILOL [Concomitant]
  18. EXELON [Concomitant]
  19. PREVACID [Concomitant]
  20. CLONIDINE [Concomitant]
  21. ASPIRIN [Concomitant]
  22. NEXIUM [Concomitant]
  23. CATAPRES [Concomitant]
  24. LEXAPRO [Concomitant]
  25. AMIODARONE HCL [Concomitant]
  26. PROVENTIL NEBULIZER [Concomitant]
  27. MAGNESIUM [Concomitant]
  28. VYTORIN [Concomitant]
  29. LOVASTATIN [Concomitant]
  30. COUMADIN [Concomitant]
  31. DIGOXIN [Suspect]
     Dosage: 0.125 MG; QD; PO
     Route: 048
     Dates: start: 20060401, end: 20060501
  32. DIGOXIN [Suspect]
     Dosage: 0.250 MG; QD; PO
     Route: 048
     Dates: start: 20080818
  33. GLUCOPHAGE [Concomitant]
  34. LANTUS [Concomitant]
  35. PREVACID [Concomitant]
  36. REGLAN [Concomitant]
  37. LEVAQUIN [Concomitant]
  38. HUMULIN INSULIN [Concomitant]
  39. XOPENEX [Concomitant]
  40. VYTORIN [Concomitant]
  41. LANTUS [Concomitant]
  42. ATROVENT [Concomitant]
  43. AMARYL [Concomitant]
  44. CARDIZEM [Concomitant]
  45. EXELON [Concomitant]
  46. PERCOCET [Concomitant]
  47. RAMIPRIL [Concomitant]
  48. CARDARONE [Concomitant]
  49. ADVACOR [Concomitant]
  50. ALDACTONE [Concomitant]
  51. CLONIDINE [Concomitant]

REACTIONS (53)
  - DYSPNOEA [None]
  - PLEURAL EFFUSION [None]
  - HEADACHE [None]
  - THIRST [None]
  - BLOOD POTASSIUM INCREASED [None]
  - ECONOMIC PROBLEM [None]
  - ATRIAL FIBRILLATION [None]
  - PALPITATIONS [None]
  - ATRIAL FLUTTER [None]
  - TREATMENT NONCOMPLIANCE [None]
  - ELECTROCARDIOGRAM REPOLARISATION ABNORMALITY [None]
  - PERIPHERAL ISCHAEMIA [None]
  - CONTUSION [None]
  - EJECTION FRACTION DECREASED [None]
  - DIZZINESS [None]
  - LACERATION [None]
  - FALL [None]
  - EMBOLIC STROKE [None]
  - INTERNATIONAL NORMALISED RATIO DECREASED [None]
  - ASTHENIA [None]
  - MYOCARDIAL INFARCTION [None]
  - INSOMNIA [None]
  - DYSPHAGIA [None]
  - ARTHRALGIA [None]
  - AORTIC VALVE DISEASE [None]
  - CARDIOMEGALY [None]
  - DIABETIC GASTROPARESIS [None]
  - ATRIOVENTRICULAR BLOCK [None]
  - MULTIPLE INJURIES [None]
  - MALAISE [None]
  - HYPERLIPIDAEMIA [None]
  - VOMITING [None]
  - DIABETES MELLITUS INADEQUATE CONTROL [None]
  - NAUSEA [None]
  - VENTRICULAR HYPOKINESIA [None]
  - PERIPHERAL COLDNESS [None]
  - LOBAR PNEUMONIA [None]
  - LEFT VENTRICULAR DYSFUNCTION [None]
  - ROAD TRAFFIC ACCIDENT [None]
  - MUSCLE STRAIN [None]
  - PULMONARY EMBOLISM [None]
  - LUNG INFILTRATION [None]
  - PRODUCT QUALITY ISSUE [None]
  - URINARY TRACT INFECTION [None]
  - CHEST DISCOMFORT [None]
  - THROMBOSIS [None]
  - INTRACARDIAC THROMBUS [None]
  - MAGNESIUM DEFICIENCY [None]
  - PAIN [None]
  - HYPERGLYCAEMIA [None]
  - CARDIOACTIVE DRUG LEVEL DECREASED [None]
  - LEFT ATRIAL DILATATION [None]
  - HEART RATE INCREASED [None]
